FAERS Safety Report 13268902 (Version 1)
Quarter: 2017Q1

REPORT INFORMATION
  Report Type: Report from Study
  Country: US (occurrence: US)
  Receive Date: 20170224
  Receipt Date: 20170224
  Transmission Date: 20170428
  Serious: Yes (Other)
  Sender: FDA-Public Use
  Company Number: US-GILEAD-2017-0258108

PATIENT
  Age: 70 Year
  Sex: Male
  Weight: 85.26 kg

DRUGS (9)
  1. AMBRISENTAN [Suspect]
     Active Substance: AMBRISENTAN
     Indication: PULMONARY ARTERIAL HYPERTENSION
     Dosage: 5 MG, QD
     Route: 065
     Dates: start: 20170116, end: 20170216
  2. DILTIAZEM CD [Concomitant]
     Active Substance: DILTIAZEM
  3. TORSEMIDE. [Concomitant]
     Active Substance: TORSEMIDE
  4. METOPROLOL TARTRATE. [Concomitant]
     Active Substance: METOPROLOL TARTRATE
  5. LOSARTAN. [Concomitant]
     Active Substance: LOSARTAN
  6. ADCIRCA [Concomitant]
     Active Substance: TADALAFIL
  7. GLIMEPIRIDE. [Concomitant]
     Active Substance: GLIMEPIRIDE
  8. INVOKAMET [Concomitant]
     Active Substance: CANAGLIFLOZIN\METFORMIN HYDROCHLORIDE
  9. COUMADINE [Concomitant]
     Active Substance: WARFARIN SODIUM

REACTIONS (3)
  - Drug ineffective [Not Recovered/Not Resolved]
  - Dyspnoea [Not Recovered/Not Resolved]
  - Pulmonary congestion [Unknown]

NARRATIVE: CASE EVENT DATE: 201701
